FAERS Safety Report 21793103 (Version 1)
Quarter: 2022Q4

REPORT INFORMATION
  Report Type: Spontaneous
  Country: US (occurrence: US)
  Receive Date: 20221229
  Receipt Date: 20221229
  Transmission Date: 20230113
  Serious: Yes (Death, Hospitalization, Other)
  Sender: FDA-Public Use
  Company Number: US-Hikma Pharmaceuticals USA Inc.-US-H14001-22-03226

PATIENT
  Age: 58 Year
  Sex: Female

DRUGS (6)
  1. DEXAMETHASONE [Suspect]
     Active Substance: DEXAMETHASONE
     Indication: COVID-19 pneumonia
     Route: 065
  2. DEXAMETHASONE [Suspect]
     Active Substance: DEXAMETHASONE
     Route: 042
  3. TOFACITINIB [Suspect]
     Active Substance: TOFACITINIB
     Indication: COVID-19 pneumonia
     Route: 065
  4. REMDESIVIR [Suspect]
     Active Substance: REMDESIVIR
     Indication: COVID-19 pneumonia
     Route: 065
  5. REMDESIVIR [Suspect]
     Active Substance: REMDESIVIR
     Route: 065
  6. OXYGEN [Concomitant]
     Active Substance: OXYGEN
     Indication: COVID-19 pneumonia
     Dosage: 15 L/MIN
     Route: 045

REACTIONS (3)
  - Multiple organ dysfunction syndrome [Fatal]
  - Herpes simplex [Fatal]
  - Haemophagocytic lymphohistiocytosis [Fatal]
